FAERS Safety Report 16207135 (Version 1)
Quarter: 2019Q2

REPORT INFORMATION
  Report Type: Spontaneous
  Country: US (occurrence: US)
  Receive Date: 20190313
  Receipt Date: 20190313
  Transmission Date: 20190711
  Serious: No
  Sender: FDA-Public Use
  Company Number: None

PATIENT
  Age: 69 Year
  Sex: Female
  Weight: 91.9 kg

DRUGS (1)
  1. OPTISON PERFLUTREN PROTEIN-TYPE A MICROSPHERES [Suspect]
     Active Substance: HUMAN ALBUMIN MICROSPHERES
     Indication: ECHOCARDIOGRAM
     Dosage: ?          OTHER ROUTE:IV PUSH?
     Route: 042
     Dates: start: 20181103

REACTIONS (2)
  - Chest pain [None]
  - Cardiac arrest [None]
